FAERS Safety Report 10753091 (Version 1)
Quarter: 2015Q1

REPORT INFORMATION
  Report Type: Spontaneous
  Country: CA (occurrence: CA)
  Receive Date: 20150130
  Receipt Date: 20150130
  Transmission Date: 20150721
  Serious: Yes (Other)
  Sender: FDA-Public Use
  Company Number: CA-009507513-1501CAN009129

PATIENT
  Sex: Female

DRUGS (3)
  1. INTRON A [Suspect]
     Active Substance: INTERFERON ALFA-2B
     Indication: MASTOCYTOSIS
     Dosage: STRENGTH 60 MU
     Route: 065
  2. INTRON A [Suspect]
     Active Substance: INTERFERON ALFA-2B
     Indication: MASTOCYTOSIS
     Dosage: STRENGTH 30 MU
     Route: 065
  3. INTRON A [Suspect]
     Active Substance: INTERFERON ALFA-2B
     Indication: MASTOCYTOSIS
     Dosage: STRENGHT: 18 MU
     Route: 065

REACTIONS (3)
  - Recurrent cancer [Unknown]
  - Fatigue [Unknown]
  - Malaise [Unknown]
